FAERS Safety Report 24980087 (Version 1)
Quarter: 2025Q1

REPORT INFORMATION
  Report Type: Spontaneous
  Country: US (occurrence: US)
  Receive Date: 20250218
  Receipt Date: 20250218
  Transmission Date: 20250409
  Serious: No
  Sender: JOHNSON AND JOHNSON
  Company Number: US-JNJFOC-20241235509

PATIENT
  Sex: Female

DRUGS (2)
  1. STELARA [Suspect]
     Active Substance: USTEKINUMAB
     Indication: Colitis ulcerative
     Route: 065
  2. STELARA [Suspect]
     Active Substance: USTEKINUMAB

REACTIONS (16)
  - No adverse event [Unknown]
  - Wrong technique in product usage process [Unknown]
  - Product communication issue [Unknown]
  - Product use issue [Unknown]
  - Anxiety [Unknown]
  - Colonoscopy [Unknown]
  - Large intestine polyp [Unknown]
  - Gastrointestinal inflammation [Unknown]
  - Sensory disturbance [Unknown]
  - Product complaint [Unknown]
  - Product storage error [Unknown]
  - Product dose omission issue [Unknown]
  - Product dispensing issue [Unknown]
  - Product storage error [Unknown]
  - Inflammation [Unknown]
  - Abdominal discomfort [Unknown]
